FAERS Safety Report 10219225 (Version 2)
Quarter: 2014Q2

REPORT INFORMATION
  Report Type: Spontaneous
  Country: HU (occurrence: HU)
  Receive Date: 20140605
  Receipt Date: 20140612
  Transmission Date: 20141212
  Serious: Yes (Other)
  Sender: FDA-Public Use
  Company Number: HU-BAYER-2014-079163

PATIENT
  Age: 33 Year
  Sex: Male
  Weight: 82 kg

DRUGS (4)
  1. HELIXATE NEXGEN [Suspect]
     Dosage: 2000 IU, 3 X WEEK
     Route: 042
     Dates: start: 20140411
  2. HELIXATE NEXGEN [Suspect]
     Dosage: 2000 IU, 3 X WEEK
     Route: 042
  3. HELIXATE NEXGEN [Suspect]
     Dosage: 3000 IU, UNK
     Route: 042
  4. INTERFERON [Suspect]
     Dosage: UNK
     Dates: end: 201403

REACTIONS (1)
  - Haemarthrosis [Recovered/Resolved]
